FAERS Safety Report 8294246-2 (Version None)
Quarter: 2012Q2

REPORT INFORMATION
  Report Type: 
  Country: None (occurrence: None)
  Receive Date: 20120418
  Receipt Date: 20120417
  Transmission Date: 20120825
  Serious: Yes (Other)
  Sender: FDA-Public Use
  Company Number: PHHY2012NL032289

PATIENT
  Sex: Female

DRUGS (3)
  1. ZOMETA [Suspect]
     Indication: BREAST CANCER METASTATIC
     Dosage: 4 MG/100ML, 1X PER 182 DAYS
     Route: 042
     Dates: start: 20091002
  2. ZOMETA [Suspect]
     Dosage: 4 MG/100ML, 1X PER 182 DAYS
     Route: 042
     Dates: start: 20110411
  3. ZOMETA [Suspect]
     Dosage: 4 MG/100ML, 1X PER 182 DAYS
     Route: 042
     Dates: start: 20111010

REACTIONS (1)
  - OSTEONECROSIS OF JAW [None]
